FAERS Safety Report 10205695 (Version 15)
Quarter: 2016Q4

REPORT INFORMATION
  Report Type: Spontaneous
  Country: CA (occurrence: CA)
  Receive Date: 20140530
  Receipt Date: 20161028
  Transmission Date: 20170206
  Serious: Yes (Hospitalization, Other)
  Sender: FDA-Public Use
  Company Number: CA-ROCHE-1409404

PATIENT
  Age: 63 Year
  Sex: Female

DRUGS (9)
  1. XOLAIR [Suspect]
     Active Substance: OMALIZUMAB
     Dosage: UNK
     Route: 058
     Dates: start: 20140123
  2. XOLAIR [Suspect]
     Active Substance: OMALIZUMAB
     Dosage: UNK
     Route: 058
     Dates: start: 20141014
  3. XOLAIR [Suspect]
     Active Substance: OMALIZUMAB
     Dosage: UNK
     Route: 058
     Dates: start: 20161004
  4. XOLAIR [Suspect]
     Active Substance: OMALIZUMAB
     Dosage: UNK
     Route: 058
     Dates: start: 20140916
  5. XOLAIR [Suspect]
     Active Substance: OMALIZUMAB
     Dosage: UNK
     Route: 058
     Dates: start: 20141209
  6. XOLAIR [Suspect]
     Active Substance: OMALIZUMAB
     Dosage: UNK
     Route: 058
     Dates: start: 20161018
  7. XOLAIR [Suspect]
     Active Substance: OMALIZUMAB
     Indication: ASTHMA
     Route: 058
     Dates: start: 20131203
  8. XOLAIR [Suspect]
     Active Substance: OMALIZUMAB
     Dosage: UNK
     Route: 058
     Dates: start: 20160524
  9. COMBIVENT RESPIMAT [Suspect]
     Active Substance: ALBUTEROL SULFATE\IPRATROPIUM BROMIDE
     Indication: PRODUCT USED FOR UNKNOWN INDICATION
     Dosage: 2 DF (20MCG/100MCG, 2 PUFFS), QD
     Route: 065

REACTIONS (23)
  - Decreased appetite [Unknown]
  - Dyspnoea [Unknown]
  - Dizziness [Unknown]
  - Malaise [Unknown]
  - Bone density decreased [Unknown]
  - Nausea [Unknown]
  - Middle insomnia [Unknown]
  - Sensitivity to weather change [Unknown]
  - Dyspnoea exertional [Unknown]
  - Pyrexia [Unknown]
  - Rhinorrhoea [Unknown]
  - Tremor [Unknown]
  - Hypersensitivity [Unknown]
  - Depressed mood [Unknown]
  - Headache [Unknown]
  - Blood pressure systolic increased [Unknown]
  - Body temperature decreased [Unknown]
  - Influenza [Recovering/Resolving]
  - Alopecia [Unknown]
  - Back pain [Unknown]
  - Pulmonary pain [Unknown]
  - Pneumonia [Recovered/Resolved]
  - Asthma [Unknown]

NARRATIVE: CASE EVENT DATE: 20131217
